FAERS Safety Report 12420263 (Version 1)
Quarter: 2016Q2

REPORT INFORMATION
  Report Type: Spontaneous
  Country: CA (occurrence: CA)
  Receive Date: 20160531
  Receipt Date: 20160531
  Transmission Date: 20160815
  Serious: Yes (Other)
  Sender: FDA-Public Use
  Company Number: CA-BAYER-2016-102598

PATIENT
  Sex: Female

DRUGS (1)
  1. CLARITIN RAPID DISSOLVE [Suspect]
     Active Substance: LORATADINE
     Dosage: UNK

REACTIONS (4)
  - Chills [None]
  - Malaise [None]
  - Viral infection [None]
  - Vomiting [None]
